FAERS Safety Report 16703777 (Version 1)
Quarter: 2019Q3

REPORT INFORMATION
  Report Type: Spontaneous
  Country: US (occurrence: US)
  Receive Date: 20190814
  Receipt Date: 20190814
  Transmission Date: 20191004
  Serious: No
  Sender: FDA-Public Use
  Company Number: US-ASTRAZENECA-2019SF03317

PATIENT
  Sex: Female
  Weight: 67.1 kg

DRUGS (6)
  1. COENZYME Q10 [Concomitant]
     Active Substance: UBIDECARENONE
     Indication: SUPPLEMENTATION THERAPY
     Route: 048
     Dates: start: 20190703
  2. VITAMIN D3 [Concomitant]
     Active Substance: CHOLECALCIFEROL
     Indication: FATIGUE
     Route: 048
     Dates: start: 201809
  3. LIPITOR [Concomitant]
     Active Substance: ATORVASTATIN CALCIUM
     Indication: BLOOD CHOLESTEROL
     Route: 048
     Dates: start: 201802
  4. BRILINTA [Suspect]
     Active Substance: TICAGRELOR
     Indication: STENT PLACEMENT
     Route: 048
     Dates: start: 20190726
  5. MAGNESIUM [Concomitant]
     Active Substance: MAGNESIUM
     Route: 048
     Dates: start: 20190621
  6. ASPIRIN. [Concomitant]
     Active Substance: ASPIRIN
     Indication: SUPPLEMENTATION THERAPY
     Route: 048
     Dates: start: 20190626

REACTIONS (5)
  - Contusion [Recovering/Resolving]
  - Erythema [Recovering/Resolving]
  - Peripheral swelling [Not Recovered/Not Resolved]
  - Epistaxis [Recovered/Resolved]
  - Arthralgia [Not Recovered/Not Resolved]
